FAERS Safety Report 25817869 (Version 1)
Quarter: 2025Q3

REPORT INFORMATION
  Report Type: Spontaneous
  Country: US (occurrence: US)
  Receive Date: 20250918
  Receipt Date: 20250918
  Transmission Date: 20251021
  Serious: No
  Sender: ALVOGEN
  Company Number: US-ALVOGEN-2022-ALVOGEN-120931

PATIENT
  Sex: Male

DRUGS (1)
  1. DEXTROAMPHETAMINE SACCHARATE, AMPHETAMINE ASPARTATE, DEXTROAMPHETAMINE [Suspect]
     Active Substance: AMPHETAMINE ASPARTATE\AMPHETAMINE SULFATE\DEXTROAMPHETAMINE SACCHARATE\DEXTROAMPHETAMINE SULFATE
     Indication: Attention deficit hyperactivity disorder

REACTIONS (8)
  - Somnolence [Unknown]
  - Feeling abnormal [Unknown]
  - Disturbance in attention [Unknown]
  - Abdominal discomfort [Unknown]
  - Product substitution issue [Unknown]
  - Product taste abnormal [Unknown]
  - Drug ineffective [Unknown]
  - Product formulation issue [Unknown]
